FAERS Safety Report 5481865-1 (Version None)
Quarter: 2007Q4

REPORT INFORMATION
  Report Type: 
  Country: None (occurrence: None)
  Receive Date: 20071010
  Receipt Date: 20070925
  Transmission Date: 20080405
  Serious: No
  Sender: FDA-Public Use
  Company Number: US-BOEHRINGER INGELHEIM PHARMACEUTICALS, INC.-2007-BP-20507BP

PATIENT
  Sex: Male

DRUGS (2)
  1. FLOMAX [Suspect]
     Indication: BENIGN PROSTATIC HYPERPLASIA
     Route: 048
     Dates: start: 20070801
  2. FLOMAX [Suspect]
     Indication: PROSTATE EXAMINATION ABNORMAL

REACTIONS (3)
  - DISCOMFORT [None]
  - EJACULATION FAILURE [None]
  - FATIGUE [None]
